FAERS Safety Report 7193630-8 (Version None)
Quarter: 2010Q4

REPORT INFORMATION
  Report Type: 
  Country: None (occurrence: None)
  Receive Date: 20101223
  Receipt Date: 20101218
  Transmission Date: 20110411
  Serious: Yes (Other)
  Sender: FDA-Public Use
  Company Number: LB-NOVOPROD-319389

PATIENT
  Age: 52 Year
  Sex: Male
  Weight: 99 kg

DRUGS (6)
  1. VICTOZA [Suspect]
     Indication: TYPE 2 DIABETES MELLITUS
     Dosage: 0.6 MG, QD FIRST STEP
  2. VICTOZA [Suspect]
     Dosage: 0.6 X 3 = 1.8 MG
     Dates: start: 20101102, end: 20101109
  3. CO-APROVEL [Concomitant]
     Dosage: 300 UNK, UNK
     Route: 048
     Dates: start: 20080101
  4. GLUCOPHAGE [Concomitant]
     Dosage: 750 XR
     Route: 048
     Dates: start: 20090101
  5. NEBIVOLOL HCL [Concomitant]
     Dosage: 5 UNK, UNK
     Route: 048
     Dates: start: 20090101
  6. ZYLORIC [Concomitant]
     Dosage: 300 UNK, QD
     Route: 048
     Dates: start: 20100101

REACTIONS (1)
  - STRESS [None]
